FAERS Safety Report 18861062 (Version 3)
Quarter: 2021Q1

REPORT INFORMATION
  Report Type: Spontaneous
  Country: CN (occurrence: CN)
  Receive Date: 20210208
  Receipt Date: 20210326
  Transmission Date: 20210420
  Serious: Yes (Hospitalization, Disabling, Other)
  Sender: FDA-Public Use
  Company Number: NVSC2021CN023411

PATIENT
  Sex: Male

DRUGS (4)
  1. KEPPRA [Concomitant]
     Active Substance: LEVETIRACETAM
     Indication: EPILEPSY
     Dosage: UNK
     Route: 065
  2. CLONAZEPAM. [Concomitant]
     Active Substance: CLONAZEPAM
     Indication: PRODUCT USED FOR UNKNOWN INDICATION
     Dosage: 0.5 DF, QD (NIGHT)
     Route: 065
  3. BENZHEXOL HYDROCHLORIDE [Concomitant]
     Active Substance: TRIHEXYPHENIDYL HYDROCHLORIDE
     Indication: PRODUCT USED FOR UNKNOWN INDICATION
     Dosage: UNK
     Route: 065
  4. MAYZENT [Suspect]
     Active Substance: SIPONIMOD
     Indication: SECONDARY PROGRESSIVE MULTIPLE SCLEROSIS
     Dosage: 2 MG, QD (MORNING)
     Route: 048
     Dates: start: 20201020, end: 20201030

REACTIONS (14)
  - Tooth injury [Unknown]
  - Swelling [Unknown]
  - Blister [Unknown]
  - Tremor [Not Recovered/Not Resolved]
  - Pneumonia [Unknown]
  - Paralysis [Not Recovered/Not Resolved]
  - Oral infection [Unknown]
  - Muscle spasms [Recovering/Resolving]
  - Skin injury [Not Recovered/Not Resolved]
  - Pyrexia [Recovered/Resolved]
  - Skin ulcer [Unknown]
  - Protein total decreased [Not Recovered/Not Resolved]
  - Erythema [Unknown]
  - White blood cell count decreased [Unknown]

NARRATIVE: CASE EVENT DATE: 20201231
